FAERS Safety Report 21821735 (Version 1)
Quarter: 2023Q1

REPORT INFORMATION
  Report Type: Spontaneous
  Country: US (occurrence: US)
  Receive Date: 20230105
  Receipt Date: 20230105
  Transmission Date: 20230418
  Serious: No
  Sender: FDA-Public Use
  Company Number: US-STRIDES ARCOLAB LIMITED-2022SP014164

PATIENT
  Age: 6 Decade
  Sex: Male

DRUGS (36)
  1. DISULFIRAM [Suspect]
     Active Substance: DISULFIRAM
     Indication: Lyme disease
     Dosage: UNK
     Route: 048
     Dates: start: 201907
  2. DISULFIRAM [Suspect]
     Active Substance: DISULFIRAM
     Dosage: 250 MILLIGRAM, BID
     Route: 048
  3. DISULFIRAM [Suspect]
     Active Substance: DISULFIRAM
     Dosage: UNK, BASED REGIMENS
     Route: 065
  4. DOXYCYCLINE [Suspect]
     Active Substance: DOXYCYCLINE
     Indication: Lyme disease
     Dosage: UNK
     Route: 065
     Dates: start: 201812
  5. VANCOMYCIN [Suspect]
     Active Substance: VANCOMYCIN
     Indication: Lyme disease
     Dosage: UNK
     Route: 065
  6. NYSTATIN [Suspect]
     Active Substance: NYSTATIN
     Indication: Lyme disease
     Dosage: UNK
     Route: 065
  7. DAPSONE [Suspect]
     Active Substance: DAPSONE
     Indication: Lyme disease
     Dosage: 50 MILLIGRAM PER DAY
     Route: 048
     Dates: start: 201601
  8. DAPSONE [Suspect]
     Active Substance: DAPSONE
     Dosage: 100 MILLIGRAM PER DAY
     Route: 048
     Dates: start: 201603
  9. DAPSONE [Suspect]
     Active Substance: DAPSONE
     Dosage: 50 MILLIGRAM PER DAY
     Route: 048
     Dates: start: 201812
  10. DAPSONE [Suspect]
     Active Substance: DAPSONE
     Dosage: UNK, BASED REGIMENS
     Route: 065
  11. RIFAMPIN [Concomitant]
     Active Substance: RIFAMPIN
     Indication: Lyme disease
     Dosage: 300 MILLIGRAM, BID
     Route: 048
  12. MINOCYCLINE [Concomitant]
     Active Substance: MINOCYCLINE HYDROCHLORIDE
     Indication: Lyme disease
     Dosage: 100 MILLIGRAM, BID
     Route: 048
  13. HYDROXYCHLOROQUINE [Concomitant]
     Active Substance: HYDROXYCHLOROQUINE
     Indication: Lyme disease
     Dosage: UNK
     Route: 065
     Dates: start: 201812
  14. RIFABUTIN [Concomitant]
     Active Substance: RIFABUTIN
     Indication: Lyme disease
     Dosage: UNK
     Route: 065
     Dates: start: 201812
  15. PYRAZINAMIDE [Concomitant]
     Active Substance: PYRAZINAMIDE
     Indication: Bartonellosis
     Dosage: 2000 MILLIGRAM PER DAY
     Route: 065
  16. FENOFIBRATE [Concomitant]
     Active Substance: FENOFIBRATE
     Indication: Hyperlipidaemia
     Dosage: 145 MILLIGRAM PER DAY
     Route: 065
  17. AMLODIPINE [Concomitant]
     Active Substance: AMLODIPINE BESYLATE
     Indication: Hypertension
     Dosage: 5 MILLIGRAM PER DAY
     Route: 065
  18. VALSARTAN [Concomitant]
     Active Substance: VALSARTAN
     Indication: Hypertension
     Dosage: 160 MILLIGRAM PER DAY
     Route: 065
  19. AZITHROMYCIN [Concomitant]
     Active Substance: AZITHROMYCIN
     Indication: Lyme disease
     Dosage: UNK
     Route: 065
  20. AZITHROMYCIN [Concomitant]
     Active Substance: AZITHROMYCIN
     Dosage: UNK
     Route: 065
  21. ENOXAPARIN [Concomitant]
     Active Substance: ENOXAPARIN
     Indication: Pulmonary embolism
     Dosage: UNK
     Route: 065
  22. WARFARIN [Concomitant]
     Active Substance: WARFARIN
     Indication: Pulmonary embolism
     Dosage: UNK
     Route: 065
  23. CEFDINIR [Concomitant]
     Active Substance: CEFDINIR
     Indication: Lyme disease
     Dosage: UNK
     Route: 065
  24. PROBENECID [Concomitant]
     Active Substance: PROBENECID
     Indication: Lyme disease
     Dosage: UNK
     Route: 065
  25. HYDROCORTISONE [Concomitant]
     Active Substance: HYDROCORTISONE
     Indication: Lyme disease
     Dosage: UNK
     Route: 065
  26. CEFTRIAXONE [Concomitant]
     Active Substance: CEFTRIAXONE
     Indication: Lyme disease
     Dosage: UNK
     Route: 065
  27. CLINDAMYCIN [Concomitant]
     Active Substance: CLINDAMYCIN
     Indication: Lyme disease
     Dosage: UNK
     Route: 065
  28. PENICILLIN G BENZATHINE [Concomitant]
     Active Substance: PENICILLIN G BENZATHINE
     Indication: Lyme disease
     Dosage: UNK
     Route: 065
  29. ATOVAQUONE\PROGUANIL [Concomitant]
     Active Substance: ATOVAQUONE\PROGUANIL
     Indication: Lyme disease
     Dosage: UNK
     Route: 065
  30. ATOVAQUONE [Concomitant]
     Active Substance: ATOVAQUONE
     Indication: Lyme disease
     Dosage: UNK
     Route: 065
  31. TINIDAZOLE [Concomitant]
     Active Substance: TINIDAZOLE
     Indication: Lyme disease
     Dosage: UNK
     Route: 065
  32. LEVOFLOXACIN [Concomitant]
     Active Substance: LEVOFLOXACIN
     Indication: Lyme disease
     Dosage: UNK
     Route: 065
  33. HERBALS\WITHANIA SOMNIFERA ROOT [Concomitant]
     Active Substance: HERBALS\WITHANIA SOMNIFERA ROOT
     Indication: Lyme disease
     Dosage: UNK
     Route: 065
  34. RHODIOLA [RHODIOLA ROSEA] [Concomitant]
     Indication: Lyme disease
     Dosage: UNK
     Route: 065
  35. SEPTRA DS [Concomitant]
     Active Substance: SULFAMETHOXAZOLE\TRIMETHOPRIM
     Indication: Lyme disease
     Dosage: UNK
     Route: 065
  36. LEVOMEFOLIC ACID [Concomitant]
     Active Substance: LEVOMEFOLIC ACID
     Indication: Lyme disease
     Dosage: UNK
     Route: 065

REACTIONS (2)
  - Jarisch-Herxheimer reaction [Unknown]
  - Off label use [Unknown]

NARRATIVE: CASE EVENT DATE: 20160301
